FAERS Safety Report 9897346 (Version 2)
Quarter: 2014Q1

REPORT INFORMATION
  Report Type: Report from Study
  Country: JP (occurrence: JP)
  Receive Date: 20140214
  Receipt Date: 20140318
  Transmission Date: 20141002
  Serious: Yes (Other)
  Sender: FDA-Public Use
  Company Number: JP-SA-2014SA016141

PATIENT
  Age: 38 Year
  Sex: Male
  Weight: 61 kg

DRUGS (9)
  1. ETOPOSIDE [Suspect]
     Indication: BONE MARROW CONDITIONING REGIMEN
     Route: 065
  2. ETOPOSIDE [Suspect]
     Indication: BONE MARROW CONDITIONING REGIMEN
     Dosage: AS PART OF LDEC?2 COURSES
     Route: 065
  3. ANTI-THYMOCYTE GLOBULIN (RABBIT) [Suspect]
     Indication: BONE MARROW CONDITIONING REGIMEN
     Dosage: 2 COURSES
     Route: 065
  4. FLUDARABINE PHOSPHATE [Suspect]
     Indication: BONE MARROW CONDITIONING REGIMEN
     Dosage: 2 COURSES
     Route: 065
  5. CYTOSINE ARABINOSIDE [Suspect]
     Indication: BONE MARROW CONDITIONING REGIMEN
     Dosage: AS PART OF LDEC?2 COURSES
     Route: 065
  6. L-PAM [Suspect]
     Indication: BONE MARROW CONDITIONING REGIMEN
     Dosage: 2 COURSES
     Route: 065
  7. ACYCLOVIR [Concomitant]
     Route: 048
  8. TACROLIMUS [Concomitant]
     Indication: PROPHYLAXIS AGAINST GRAFT VERSUS HOST DISEASE
  9. METHOTREXATE [Concomitant]
     Indication: PROPHYLAXIS AGAINST GRAFT VERSUS HOST DISEASE

REACTIONS (1)
  - Histiocytosis haematophagic [Unknown]
